FAERS Safety Report 4709794-9 (Version None)
Quarter: 2005Q3

REPORT INFORMATION
  Report Type: 
  Country: None (occurrence: None)
  Receive Date: 20050708
  Receipt Date: 20050624
  Transmission Date: 20060218
  Serious: Yes (Hospitalization, Other)
  Sender: FDA-Public Use
  Company Number: DE-JNJFOC-20050606853

PATIENT
  Sex: Female
  Weight: 30 kg

DRUGS (1)
  1. CONCERTA [Suspect]
     Route: 049

REACTIONS (3)
  - ENCEPHALITIS [None]
  - HYPERTENSION [None]
  - URINARY TRACT INFECTION ENTEROCOCCAL [None]
